FAERS Safety Report 10210525 (Version 1)
Quarter: 2014Q2

REPORT INFORMATION
  Report Type: Spontaneous
  Country: US (occurrence: None)
  Receive Date: 20140529
  Receipt Date: 20140529
  Transmission Date: 20141212
  Serious: Yes (Hospitalization, Other)
  Sender: FDA-Public Use
  Company Number: None

PATIENT
  Age: 66 Year
  Sex: Female
  Weight: 65.77 kg

DRUGS (1)
  1. RITUXIMAB [Suspect]
     Indication: B-CELL LYMPHOMA
     Dosage: 700MG, DAY 1 X 4 CYCLES, IV?
     Route: 042
     Dates: start: 20121025, end: 20130124

REACTIONS (2)
  - Progressive multifocal leukoencephalopathy [None]
  - Creutzfeldt-Jakob disease [None]
